FAERS Safety Report 21475076 (Version 2)
Quarter: 2022Q4

REPORT INFORMATION
  Report Type: Report from Study
  Country: US (occurrence: US)
  Receive Date: 20221019
  Receipt Date: 20221104
  Transmission Date: 20230113
  Serious: No
  Sender: FDA-Public Use
  Company Number: US-ABBVIE-4151820

PATIENT
  Sex: Female

DRUGS (1)
  1. IMBRUVICA [Suspect]
     Active Substance: IBRUTINIB
     Indication: Chronic lymphocytic leukaemia
     Route: 048
     Dates: start: 20220622

REACTIONS (7)
  - Epistaxis [Unknown]
  - Painful respiration [Unknown]
  - Rabies [Unknown]
  - Blister [Unknown]
  - Increased tendency to bruise [Unknown]
  - Wound [Unknown]
  - Pruritus [Unknown]
